FAERS Safety Report 7571616-9 (Version None)
Quarter: 2011Q2

REPORT INFORMATION
  Report Type: 
  Country: None (occurrence: None)
  Receive Date: 20110624
  Receipt Date: 20110616
  Transmission Date: 20111010
  Serious: Yes (Death, Other)
  Sender: FDA-Public Use
  Company Number: JP-JNJFOC-20110403452

PATIENT
  Sex: Female
  Weight: 70 kg

DRUGS (18)
  1. ALPRAZOLAM [Suspect]
     Indication: SEDATION
     Route: 048
     Dates: start: 20100608, end: 20110323
  2. DEPAS [Concomitant]
     Indication: ANALGESIC THERAPY
     Route: 048
     Dates: start: 20110222, end: 20110323
  3. SILECE [Suspect]
     Indication: SLEEP DISORDER
     Route: 048
     Dates: start: 20100608, end: 20110323
  4. SEDATIVES [Concomitant]
     Route: 065
  5. ANTIDEPRESSANTS [Concomitant]
     Route: 065
  6. FENTANYL-100 [Suspect]
     Dosage: APPLIED 7 50 UG/HR PATCHES
     Route: 062
     Dates: end: 20110405
  7. DIAZEPAM [Suspect]
     Indication: SEDATION
     Route: 048
     Dates: start: 20101013, end: 20110323
  8. AMITRIPTYLINE HCL [Concomitant]
     Indication: ANALGESIC THERAPY
     Route: 048
     Dates: start: 20100608, end: 20110323
  9. LOPEMIN [Concomitant]
     Indication: DIARRHOEA
     Route: 048
     Dates: start: 20100830, end: 20110323
  10. LOXONIN [Concomitant]
     Indication: ANALGESIC THERAPY
     Route: 048
     Dates: start: 20110222, end: 20110323
  11. FENTANYL-100 [Suspect]
     Indication: PAIN IN EXTREMITY
     Route: 062
  12. RINDERON-VG [Concomitant]
     Indication: RASH
     Route: 062
     Dates: start: 20100817, end: 20110323
  13. AMOBAN [Suspect]
     Indication: SLEEP DISORDER
     Route: 048
     Dates: start: 20100608, end: 20110323
  14. FENTANYL-100 [Suspect]
     Route: 062
  15. HALCION [Suspect]
     Indication: SLEEP DISORDER
     Route: 048
     Dates: start: 20100608, end: 20110323
  16. FULMETA [Concomitant]
     Indication: RASH
     Route: 062
     Dates: start: 20110222, end: 20110308
  17. NAUZELIN [Concomitant]
     Indication: ANTIEMETIC SUPPORTIVE CARE
     Route: 054
     Dates: start: 20100608, end: 20110323
  18. HEPARIN [Concomitant]
     Indication: SWELLING
     Route: 061
     Dates: start: 20110222, end: 20110323

REACTIONS (12)
  - FALL [None]
  - HYPERHIDROSIS [None]
  - COLITIS [None]
  - INAPPROPRIATE SCHEDULE OF DRUG ADMINISTRATION [None]
  - INADEQUATE ANALGESIA [None]
  - PRODUCT QUALITY ISSUE [None]
  - PYREXIA [None]
  - SUICIDE ATTEMPT [None]
  - ACUTE RESPIRATORY FAILURE [None]
  - TOXICITY TO VARIOUS AGENTS [None]
  - RIB FRACTURE [None]
  - DRUG PRESCRIBING ERROR [None]
